FAERS Safety Report 19201901 (Version 3)
Quarter: 2021Q2

REPORT INFORMATION
  Report Type: Other
  Country: US (occurrence: US)
  Receive Date: 20210430
  Receipt Date: 20210526
  Transmission Date: 20210717
  Serious: Yes (Hospitalization, Other)
  Sender: FDA-Public Use
  Company Number: US-INTERCEPT-PM2021001351

PATIENT
  Age: 54 Year
  Sex: Female
  Weight: 70 kg

DRUGS (7)
  1. DIPHENHYDRAMINE HCL [Concomitant]
     Active Substance: DIPHENHYDRAMINE HYDROCHLORIDE
     Dosage: 25 MILLIGRAM, QID
     Route: 048
  2. LISPRO INSULIN [Concomitant]
     Active Substance: INSULIN LISPRO
     Dosage: UNK
  3. FAMOTIDINE. [Concomitant]
     Active Substance: FAMOTIDINE
     Dosage: 20 MILLIGRAM, BID
     Route: 048
  4. OCALIVA [Suspect]
     Active Substance: OBETICHOLIC ACID
     Indication: PRIMARY BILIARY CHOLANGITIS
     Dosage: 5 MILLIGRAM, QW
     Route: 048
     Dates: start: 20191222
  5. GLUCAGON. [Concomitant]
     Active Substance: GLUCAGON
     Dosage: 1 MILLIGRAM
     Route: 030
  6. URSODIOL. [Concomitant]
     Active Substance: URSODIOL
     Dosage: 300 MILLIGRAM, TID
     Route: 048
  7. RIFAXIMIN. [Concomitant]
     Active Substance: RIFAXIMIN
     Dosage: 20 MILLIGRAM
     Route: 048

REACTIONS (17)
  - Ureteric obstruction [Unknown]
  - Varicose vein [Unknown]
  - Abdominal discomfort [Recovered/Resolved]
  - Pelvi-ureteric obstruction [Unknown]
  - Pain [Recovered/Resolved]
  - Thrombocytopenia [Unknown]
  - Oedema [Recovered/Resolved]
  - Chromophobe renal cell carcinoma [Unknown]
  - Nephrectomy [Recovered/Resolved]
  - Renal haemorrhage [Unknown]
  - Kidney fibrosis [Unknown]
  - Ureteric injury [Unknown]
  - Product dose omission issue [Recovered/Resolved]
  - Nausea [Recovered/Resolved]
  - Tenderness [Unknown]
  - Flatulence [Unknown]
  - Neovascularisation [Unknown]

NARRATIVE: CASE EVENT DATE: 20210420
